FAERS Safety Report 15169984 (Version 1)
Quarter: 2018Q3

REPORT INFORMATION
  Report Type: Spontaneous
  Country: CA (occurrence: CA)
  Receive Date: 20180720
  Receipt Date: 20180720
  Transmission Date: 20181010
  Serious: No
  Sender: FDA-Public Use
  Company Number: CA-ALKEM LABORATORIES LIMITED-CA-ALKEM-2018-03813

PATIENT

DRUGS (2)
  1. GATIFLOXACIN. [Suspect]
     Active Substance: GATIFLOXACIN
     Indication: LUNG INFECTION
     Dosage: UNK
     Route: 065
  2. LINEZOLID. [Suspect]
     Active Substance: LINEZOLID
     Indication: LUNG INFECTION
     Dosage: UNK
     Route: 065

REACTIONS (4)
  - Reticulocytopenia [Unknown]
  - Transferrin saturation increased [Unknown]
  - Blood iron increased [Unknown]
  - Haemoglobin decreased [Unknown]
